FAERS Safety Report 9650324 (Version 2)
Quarter: 2013Q4

REPORT INFORMATION
  Report Type: Spontaneous
  Country: US (occurrence: US)
  Receive Date: 20131028
  Receipt Date: 20131028
  Transmission Date: 20140711
  Serious: No
  Sender: FDA-Public Use
  Company Number: US-PURDUE-USA-2012-0090397

PATIENT
  Sex: Male
  Weight: 104.31 kg

DRUGS (2)
  1. OXYCONTIN (NDA 22-272) [Suspect]
     Indication: PAIN
     Dosage: 80 MG, Q12H
     Route: 048
     Dates: start: 20120125
  2. OXYCODONE HCL IMMEDIATE RELEASE (91-490) [Concomitant]
     Indication: PAIN
     Dosage: 30 MG - 120 MG/DAY
     Route: 048

REACTIONS (2)
  - Intentional drug misuse [Unknown]
  - Wrong technique in drug usage process [Unknown]
